FAERS Safety Report 21074507 (Version 1)
Quarter: 2022Q3

REPORT INFORMATION
  Report Type: Other
  Country: BR (occurrence: BR)
  Receive Date: 20220713
  Receipt Date: 20220713
  Transmission Date: 20221026
  Serious: Yes (Other)
  Sender: FDA-Public Use
  Company Number: BR-002147023-NVSC2022BR152751

PATIENT
  Sex: Female

DRUGS (3)
  1. XOLAIR [Suspect]
     Active Substance: OMALIZUMAB
     Indication: Urticaria chronic
     Dosage: UNK
     Route: 065
     Dates: start: 2018
  2. XOLAIR [Suspect]
     Active Substance: OMALIZUMAB
     Dosage: UNK
     Route: 065
     Dates: start: 202205
  3. RIZI [Concomitant]
     Indication: Antiallergic therapy
     Dosage: UNK

REACTIONS (7)
  - Anaphylactic shock [Unknown]
  - Hypertension [Unknown]
  - Chest pain [Unknown]
  - Oropharyngeal pain [Unknown]
  - Memory impairment [Unknown]
  - Urticaria [Unknown]
  - Cough [Unknown]
